FAERS Safety Report 10209192 (Version 1)
Quarter: 2014Q2

REPORT INFORMATION
  Report Type: Report from Study
  Country: CO (occurrence: CO)
  Receive Date: 20140530
  Receipt Date: 20140530
  Transmission Date: 20141212
  Serious: Yes (Other)
  Sender: FDA-Public Use
  Company Number: CO-ABBVIE-14P-036-1243080-00

PATIENT
  Age: 39 Year
  Sex: Male
  Weight: 86 kg

DRUGS (1)
  1. HUMIRA [Suspect]
     Indication: PSORIASIS
     Route: 058
     Dates: start: 20140507, end: 20140513

REACTIONS (3)
  - Fall [Recovering/Resolving]
  - Radius fracture [Recovering/Resolving]
  - Upper limb fracture [Recovering/Resolving]
